FAERS Safety Report 6026680-5 (Version None)
Quarter: 2008Q4

REPORT INFORMATION
  Report Type: 
  Country: None (occurrence: None)
  Receive Date: 20081231
  Receipt Date: 20081218
  Transmission Date: 20090506
  Serious: Yes (Hospitalization)
  Sender: FDA-Public Use
  Company Number: KV200801271

PATIENT
  Age: 47 Year
  Sex: Female
  Weight: 60.8 kg

DRUGS (16)
  1. ISOSORBIDE MONONITRATE [Suspect]
     Indication: MYOCARDIAL INFARCTION
     Dosage: 60 MG, QD, ORAL
     Route: 048
     Dates: start: 19980101
  2. APIDRA (INSULIN GLARGINE) [Concomitant]
  3. NEURONTIN [Concomitant]
  4. ZETIA [Concomitant]
  5. LUTERA-28 (ETHINYLESTRADIOL, LEVONORGESTREL) [Concomitant]
  6. PLAVIX [Concomitant]
  7. ULTRASE /00150201/ (PANCRELIPASE) [Concomitant]
  8. METOPROLOL TARTRATE [Concomitant]
  9. FUROSEMIDE [Concomitant]
  10. LISINOPRIL [Concomitant]
  11. NEXIUM [Concomitant]
  12. BENZONATATE [Concomitant]
  13. PRAVASTATIN [Concomitant]
  14. METHOCARBAMOL [Concomitant]
  15. AMBIEN [Concomitant]
  16. ATIVAN [Concomitant]

REACTIONS (3)
  - BLOOD PRESSURE DECREASED [None]
  - DYSPNOEA [None]
  - PRODUCT QUALITY ISSUE [None]
